FAERS Safety Report 14651294 (Version 1)
Quarter: 2018Q1

REPORT INFORMATION
  Report Type: Spontaneous
  Country: FR (occurrence: FR)
  Receive Date: 20180316
  Receipt Date: 20180316
  Transmission Date: 20180509
  Serious: Yes (Life-Threatening, Other)
  Sender: FDA-Public Use
  Company Number: FR-009507513-1711FRA006171

PATIENT
  Age: 44 Year
  Sex: Male
  Weight: 101 kg

DRUGS (1)
  1. JANUMET [Suspect]
     Active Substance: METFORMIN HYDROCHLORIDE\SITAGLIPTIN PHOSPHATE
     Dosage: 1 DF MORNING AND EVENING
     Route: 048
     Dates: start: 20160307, end: 20171110

REACTIONS (2)
  - Benign hepatic neoplasm [Unknown]
  - Hepatic cyst [Recovering/Resolving]

NARRATIVE: CASE EVENT DATE: 20171021
